FAERS Safety Report 6911992-0 (Version None)
Quarter: 2010Q3

REPORT INFORMATION
  Report Type: 
  Country: None (occurrence: None)
  Receive Date: 20100806
  Receipt Date: 20071227
  Transmission Date: 20110219
  Serious: No
  Sender: FDA-Public Use
  Company Number: US-PFIZER INC-2004237131US

PATIENT
  Sex: Female
  Weight: 77.11 kg

DRUGS (7)
  1. DETROL LA [Suspect]
     Indication: POLLAKIURIA
     Route: 048
  2. THYROID TAB [Concomitant]
     Route: 065
  3. ACIPHEX [Concomitant]
     Route: 048
  4. SYNTHROID [Concomitant]
     Route: 048
  5. ALLEGRA [Concomitant]
     Route: 048
  6. CALCIUM WITH VITAMIN D [Concomitant]
     Route: 048
  7. LASIX [Concomitant]
     Route: 048

REACTIONS (4)
  - DEPRESSED LEVEL OF CONSCIOUSNESS [None]
  - MENTAL IMPAIRMENT [None]
  - SWOLLEN TONGUE [None]
  - THINKING ABNORMAL [None]
